FAERS Safety Report 9758393 (Version 1)
Quarter: 2013Q4

REPORT INFORMATION
  Report Type: Spontaneous
  Country: US (occurrence: None)
  Receive Date: 20131213
  Receipt Date: 20131213
  Transmission Date: 20140711
  Serious: Yes (Other)
  Sender: FDA-Public Use
  Company Number: None

PATIENT
  Age: 36 Year
  Sex: Female

DRUGS (3)
  1. WELLBUTRIN XL [Suspect]
     Route: 048
     Dates: start: 200701, end: 200703
  2. BUPROPION XL [Suspect]
     Dosage: IN MORNING
     Route: 048
  3. LEXAPRO [Concomitant]

REACTIONS (3)
  - Depression [None]
  - Product substitution issue [None]
  - Therapeutic response unexpected with drug substitution [None]
